FAERS Safety Report 19605992 (Version 1)
Quarter: 2021Q3

REPORT INFORMATION
  Report Type: Other
  Country: FR (occurrence: FR)
  Receive Date: 20210723
  Receipt Date: 20210723
  Transmission Date: 20211014
  Serious: Yes (Death, Hospitalization)
  Sender: FDA-Public Use
  Company Number: FR-ROCHE-2874767

PATIENT

DRUGS (8)
  1. FLECAINIDE [Concomitant]
     Active Substance: FLECAINIDE
  2. BISOPROLOL [Concomitant]
     Active Substance: BISOPROLOL
  3. DIGOXIN. [Concomitant]
     Active Substance: DIGOXIN
  4. ILOPROST. [Concomitant]
     Active Substance: ILOPROST
  5. RITUXIMAB. [Suspect]
     Active Substance: RITUXIMAB
     Indication: COLD TYPE HAEMOLYTIC ANAEMIA
     Route: 065
  6. BENDAMUSTINE [Suspect]
     Active Substance: BENDAMUSTINE
     Indication: COLD TYPE HAEMOLYTIC ANAEMIA
     Route: 065
  7. FLUINDIONE [Concomitant]
     Active Substance: FLUINDIONE
  8. ASPIRIN. [Concomitant]
     Active Substance: ASPIRIN

REACTIONS (6)
  - Necrosis [Unknown]
  - Off label use [Unknown]
  - Haemorrhage [Unknown]
  - Death [Fatal]
  - Haematoma [Unknown]
  - Disease progression [Unknown]
